FAERS Safety Report 15841755 (Version 3)
Quarter: 2019Q2

REPORT INFORMATION
  Report Type: Report from Study
  Country: None (occurrence: US)
  Receive Date: 20190118
  Receipt Date: 20190605
  Transmission Date: 20190711
  Serious: Yes (Hospitalization, Other)
  Sender: FDA-Public Use
  Company Number: US-ABBVIE-19K-163-2628327-00

PATIENT
  Age: 37 Year
  Sex: Female

DRUGS (9)
  1. HUMIRA [Suspect]
     Active Substance: ADALIMUMAB
     Indication: RHEUMATOID ARTHRITIS
     Route: 058
     Dates: start: 2002
  2. HUMIRA [Suspect]
     Active Substance: ADALIMUMAB
     Indication: PSORIATIC ARTHROPATHY
     Route: 058
     Dates: start: 20190116
  3. GABAPENTIN. [Concomitant]
     Active Substance: GABAPENTIN
     Indication: PRODUCT USED FOR UNKNOWN INDICATION
  4. KLONOPIN [Concomitant]
     Active Substance: CLONAZEPAM
     Indication: ANXIETY
  5. HUMIRA [Suspect]
     Active Substance: ADALIMUMAB
     Indication: PSORIATIC ARTHROPATHY
  6. KEPPRA [Concomitant]
     Active Substance: LEVETIRACETAM
     Indication: SEIZURE
  7. LAMICTAL [Concomitant]
     Active Substance: LAMOTRIGINE
     Indication: PRODUCT USED FOR UNKNOWN INDICATION
  8. HUMIRA [Suspect]
     Active Substance: ADALIMUMAB
     Indication: RHEUMATOID ARTHRITIS
     Route: 058
     Dates: start: 2004, end: 20181206
  9. ASPIRIN. [Suspect]
     Active Substance: ASPIRIN
     Indication: DEEP VEIN THROMBOSIS
     Route: 048
     Dates: start: 2010, end: 2011

REACTIONS (20)
  - Deep vein thrombosis [Recovered/Resolved]
  - Incorrect dose administered [Unknown]
  - Incorrect dose administered [Unknown]
  - Pain [Not Recovered/Not Resolved]
  - Brain operation [Recovered/Resolved]
  - Device issue [Recovered/Resolved]
  - Injection site haemorrhage [Recovered/Resolved]
  - Brain lobectomy [Recovered/Resolved]
  - Joint swelling [Not Recovered/Not Resolved]
  - Device issue [Unknown]
  - Injection site pain [Not Recovered/Not Resolved]
  - Osteoarthritis [Recovered/Resolved]
  - Knee arthroplasty [Unknown]
  - Wrong technique in product usage process [Recovered/Resolved]
  - Memory impairment [Not Recovered/Not Resolved]
  - Arthralgia [Unknown]
  - Brain operation [Recovered/Resolved]
  - Swelling [Not Recovered/Not Resolved]
  - Nodule [Recovered/Resolved]
  - Benign lymph node neoplasm [Recovering/Resolving]

NARRATIVE: CASE EVENT DATE: 2005
